FAERS Safety Report 7291746-9 (Version None)
Quarter: 2011Q1

REPORT INFORMATION
  Report Type: 
  Country: None (occurrence: None)
  Receive Date: 20110214
  Receipt Date: 20110204
  Transmission Date: 20110831
  Serious: Yes (Other)
  Sender: FDA-Public Use
  Company Number: DE-BAXTER-2011BH003290

PATIENT
  Age: 12 Year
  Sex: Male

DRUGS (2)
  1. IFOSFAMIDE [Suspect]
     Indication: BONE SARCOMA
     Route: 065
  2. ETOPOSIDE [Suspect]
     Indication: BONE SARCOMA
     Route: 065

REACTIONS (3)
  - HEPATOTOXICITY [None]
  - RENAL FAILURE [None]
  - COAGULOPATHY [None]
